FAERS Safety Report 5575196-9 (Version None)
Quarter: 2007Q4

REPORT INFORMATION
  Report Type: 
  Country: None (occurrence: None)
  Receive Date: 20071227
  Receipt Date: 20071217
  Transmission Date: 20080405
  Serious: Yes (Hospitalization, Other)
  Sender: FDA-Public Use
  Company Number: US-ELI_LILLY_AND_COMPANY-US200712003262

PATIENT
  Sex: Female

DRUGS (2)
  1. FORTEO [Suspect]
     Indication: OSTEOPOROSIS
  2. FORTEO [Suspect]

REACTIONS (3)
  - PAIN [None]
  - ROAD TRAFFIC ACCIDENT [None]
  - WRIST FRACTURE [None]
